FAERS Safety Report 15530458 (Version 1)
Quarter: 2018Q4

REPORT INFORMATION
  Report Type: Spontaneous
  Country: FR (occurrence: FR)
  Receive Date: 20181018
  Receipt Date: 20181018
  Transmission Date: 20190205
  Serious: Yes (Hospitalization)
  Sender: FDA-Public Use
  Company Number: FR-PFIZER INC-2018413825

PATIENT
  Age: 7 Year
  Sex: Female

DRUGS (10)
  1. TAZOCILLINE [Suspect]
     Active Substance: PIPERACILLIN SODIUM\TAZOBACTAM SODIUM
     Indication: ANTIBIOTIC THERAPY
     Dosage: UNK
     Route: 042
     Dates: start: 20180610, end: 20180704
  2. VANCOMYCIN [Concomitant]
     Active Substance: VANCOMYCIN
     Dosage: UNK
     Route: 042
     Dates: start: 20180702, end: 20180712
  3. GENTAMICIN. [Concomitant]
     Active Substance: GENTAMICIN
     Dosage: UNK
     Dates: start: 20180702, end: 20180703
  4. VANCOMYCIN [Concomitant]
     Active Substance: VANCOMYCIN
     Dosage: UNK
     Route: 042
     Dates: start: 20180618, end: 20180628
  5. VANCOMYCIN [Concomitant]
     Active Substance: VANCOMYCIN
     Dosage: UNK
     Route: 048
     Dates: start: 20180712
  6. CANCIDAS [Concomitant]
     Active Substance: CASPOFUNGIN ACETATE
     Dosage: UNK
     Dates: start: 20180629, end: 20180712
  7. FLAGYL [METRONIDAZOLE BENZOATE] [Concomitant]
     Dosage: UNK
     Dates: start: 20180610, end: 20180618
  8. FLAGYL [METRONIDAZOLE BENZOATE] [Concomitant]
     Dosage: UNK
     Dates: start: 20180622, end: 20180707
  9. GENTAMICIN. [Concomitant]
     Active Substance: GENTAMICIN
     Dosage: UNK
     Route: 065
     Dates: start: 20180618, end: 20180619
  10. TRIFLUCAN [Concomitant]
     Active Substance: FLUCONAZOLE
     Dates: start: 20180610, end: 20180620

REACTIONS (4)
  - Haemophagocytic lymphohistiocytosis [Recovered/Resolved]
  - Pyrexia [Recovered/Resolved]
  - Blood triglycerides increased [Recovering/Resolving]
  - Serum ferritin increased [Recovering/Resolving]

NARRATIVE: CASE EVENT DATE: 20180618
